FAERS Safety Report 5502819-2 (Version None)
Quarter: 2007Q4

REPORT INFORMATION
  Report Type: 
  Country: None (occurrence: None)
  Receive Date: 20071031
  Receipt Date: 20071018
  Transmission Date: 20080405
  Serious: Yes (Hospitalization)
  Sender: FDA-Public Use
  Company Number: US-AMGEN-STX244196

PATIENT
  Sex: Male
  Weight: 76.3 kg

DRUGS (5)
  1. ENBREL [Suspect]
     Indication: PSORIASIS
     Route: 058
     Dates: start: 20070513, end: 20070920
  2. EXCEDRIN (MIGRAINE) [Concomitant]
     Route: 048
     Dates: start: 20050101
  3. IBUPROFEN [Concomitant]
     Route: 048
     Dates: start: 20060101
  4. CITALOPRAM HYDROBROMIDE [Concomitant]
     Dates: start: 20070904, end: 20070920
  5. BETAMETHASONE [Concomitant]
     Route: 061
     Dates: start: 20060511

REACTIONS (4)
  - ANXIETY [None]
  - DEPRESSION [None]
  - INSOMNIA [None]
  - SUICIDAL IDEATION [None]
